FAERS Safety Report 5691467-X (Version None)
Quarter: 2008Q1

REPORT INFORMATION
  Report Type: 
  Country: None (occurrence: None)
  Receive Date: 20080331
  Receipt Date: 20080325
  Transmission Date: 20080703
  Serious: Yes (Death, Life-Threatening, Hospitalization)
  Sender: FDA-Public Use
  Company Number: US-JNJFOC-20070705941

PATIENT
  Age: 68 Year
  Sex: Female
  Weight: 76.2043 kg

DRUGS (5)
  1. DECITABINE (DECITABINE) LYOPHILIZED POWDER [Suspect]
     Indication: ACUTE MYELOID LEUKAEMIA
     Dosage: 20 MG/M2, 1 IN 1 DAY, INTRAVENOUS
     Route: 042
     Dates: start: 20050523, end: 20060105
  2. ACICLOVIR (ACICLOVIR) UNSPECIFIED [Concomitant]
  3. CIPRO [Concomitant]
  4. EVISTA (RALOXIFENE HYDROCHLORIDE) UNSPECIFIED [Concomitant]
  5. METRONIDAZOLE [Concomitant]

REACTIONS (17)
  - ANURIA [None]
  - BLOOD CREATININE INCREASED [None]
  - CARDIO-RESPIRATORY ARREST [None]
  - CLOSTRIDIUM DIFFICILE COLITIS [None]
  - COLITIS [None]
  - ENTEROCOCCAL INFECTION [None]
  - FLATULENCE [None]
  - HEART RATE INCREASED [None]
  - HYPOTENSION [None]
  - MUSCLE SPASMS [None]
  - NAUSEA [None]
  - NEUTROPHIL PERCENTAGE DECREASED [None]
  - PLATELET COUNT DECREASED [None]
  - RED BLOOD CELL COUNT DECREASED [None]
  - SEPSIS [None]
  - SYNCOPE [None]
  - VOMITING [None]
